FAERS Safety Report 7604101-6 (Version None)
Quarter: 2011Q3

REPORT INFORMATION
  Report Type: 
  Country: None (occurrence: None)
  Receive Date: 20110712
  Receipt Date: 20110706
  Transmission Date: 20111222
  Serious: Yes (Other)
  Sender: FDA-Public Use
  Company Number: CN-PFIZER INC-2011150735

PATIENT
  Age: 65 Year
  Sex: Female

DRUGS (1)
  1. CEFOPERAZONE SODIUM [Suspect]
     Indication: PNEUMONIA
     Dosage: 2 G, 2X/DAY

REACTIONS (1)
  - HYPOPROTHROMBINAEMIA [None]
